FAERS Safety Report 26097315 (Version 2)
Quarter: 2025Q4

REPORT INFORMATION
  Report Type: Spontaneous
  Country: JP (occurrence: JP)
  Receive Date: 20251127
  Receipt Date: 20251208
  Transmission Date: 20260118
  Serious: Yes (Other)
  Sender: ROCHE
  Company Number: JP-ROCHE-10000445454

PATIENT
  Age: 14 Year
  Sex: Male

DRUGS (1)
  1. XOFLUZA [Suspect]
     Active Substance: BALOXAVIR MARBOXIL
     Indication: Influenza
     Route: 048
     Dates: start: 20251109, end: 20251109

REACTIONS (2)
  - Immune thrombocytopenia [Recovered/Resolved]
  - Epistaxis [Recovered/Resolved]

NARRATIVE: CASE EVENT DATE: 20251111
